FAERS Safety Report 19647161 (Version 2)
Quarter: 2021Q4

REPORT INFORMATION
  Report Type: Report from Study
  Country: US (occurrence: US)
  Receive Date: 20210802
  Receipt Date: 20211122
  Transmission Date: 20220303
  Serious: Yes (Hospitalization, Other)
  Sender: FDA-Public Use
  Company Number: US-TAKEDA-2021TUS046591

PATIENT
  Sex: Male

DRUGS (4)
  1. TEDUGLUTIDE [Suspect]
     Active Substance: TEDUGLUTIDE
     Indication: Product used for unknown indication
     Dosage: 0.42 UNKNOWN UNIT, QD
     Route: 065
     Dates: start: 20191211
  2. TEDUGLUTIDE [Suspect]
     Active Substance: TEDUGLUTIDE
     Indication: Product used for unknown indication
     Dosage: 0.42 UNKNOWN UNIT, QD
     Route: 065
     Dates: start: 20191211
  3. TEDUGLUTIDE [Suspect]
     Active Substance: TEDUGLUTIDE
     Indication: Product used for unknown indication
     Dosage: 0.42 UNKNOWN UNIT, QD
     Route: 065
     Dates: start: 20191211
  4. TEDUGLUTIDE [Suspect]
     Active Substance: TEDUGLUTIDE
     Indication: Product used for unknown indication
     Dosage: 0.42 UNKNOWN UNIT, QD
     Route: 065
     Dates: start: 20191211

REACTIONS (3)
  - Dehydration [Recovering/Resolving]
  - Renal impairment [Unknown]
  - Pain in extremity [Unknown]
